FAERS Safety Report 23176305 (Version 1)
Quarter: 2023Q4

REPORT INFORMATION
  Report Type: Spontaneous
  Country: US (occurrence: US)
  Receive Date: 20231113
  Receipt Date: 20231113
  Transmission Date: 20240110
  Serious: No
  Sender: FDA-Public Use
  Company Number: US-drreddys-SPO/USA/23/0178996

PATIENT
  Age: 7 Month
  Sex: Female

DRUGS (1)
  1. SAPROPTERIN DIHYDROCHLORIDE [Suspect]
     Active Substance: SAPROPTERIN DIHYDROCHLORIDE
     Indication: Phenylketonuria
     Dosage: DISSOLVE ONE POWDER PACKET BY MOUTH ONCE DAILY AS DIRECTED, WITH A MEAL. TAKE WITHIN 30 MINUTES OF D
     Route: 048

REACTIONS (2)
  - Ear infection [Unknown]
  - Rash [Unknown]
